FAERS Safety Report 8274828-4 (Version None)
Quarter: 2012Q2

REPORT INFORMATION
  Report Type: 
  Country: None (occurrence: None)
  Receive Date: 20120411
  Receipt Date: 20120405
  Transmission Date: 20120825
  Serious: Yes (Hospitalization)
  Sender: FDA-Public Use
  Company Number: CA-BIOMARINP-002000

PATIENT
  Sex: Female
  Weight: 90 kg

DRUGS (9)
  1. PAXIL [Concomitant]
     Indication: ANXIETY
     Route: 048
     Dates: start: 20040401
  2. CLONAZEPAM [Concomitant]
     Indication: PANIC ATTACK
     Route: 048
     Dates: start: 20110121
  3. ONE-A-DAY MULTIVITAMIN [Concomitant]
     Indication: VITAMIN SUPPLEMENTATION
     Route: 048
     Dates: start: 20090101
  4. EPIDURAL [Concomitant]
  5. BETADERM CREAM [Concomitant]
     Indication: ECZEMA
     Route: 061
  6. MAGNESIUM SULFATE [Concomitant]
  7. PROSTIN E2 [Concomitant]
  8. SAPROPTERIN [Suspect]
     Indication: PHENYLKETONURIA
     Route: 048
     Dates: start: 20110920, end: 20110920
  9. YASMIN [Concomitant]
     Indication: ORAL CONTRACEPTION
     Route: 048
     Dates: start: 20110801, end: 20110901

REACTIONS (3)
  - AMINO ACID LEVEL INCREASED [None]
  - MATERNAL EXPOSURE DURING PREGNANCY [None]
  - PRE-ECLAMPSIA [None]
